FAERS Safety Report 5026934-5 (Version None)
Quarter: 2006Q2

REPORT INFORMATION
  Report Type: 
  Country: None (occurrence: None)
  Receive Date: 20060609
  Receipt Date: 20060526
  Transmission Date: 20061013
  Serious: Yes (Death, Life-Threatening, Other)
  Sender: FDA-Public Use
  Company Number: 2006JP000812

PATIENT
  Age: 56 Year
  Sex: Male
  Weight: 61 kg

DRUGS (13)
  1. PROGRAF [Suspect]
     Indication: LIVER TRANSPLANT
     Dosage: 8 MG,
     Dates: start: 20040531, end: 20040811
  2. MEDROL ACETATE [Concomitant]
  3. SOLU-MEDROL [Concomitant]
  4. PENTICILLIN (PIPERACILLIN SODIUM) INJECTION [Concomitant]
  5. FLUMARIN (FLOMOXEF SODIUM) INJECTION [Concomitant]
  6. FUNGUARD (MICAFUNGIN) INJECTION [Concomitant]
  7. EPOGIN (EPOETIN BETA) INJECTION [Concomitant]
  8. HABEKACIN (ARBEKACIN) INJECTION [Concomitant]
  9. CEFTAZIDIME [Concomitant]
  10. CARBENIN       (BETAMIPRON, PANIPENEM) INJECTION [Concomitant]
  11. DENOSINE  (GANCICLOVIR) [Concomitant]
  12. BAKTAR (SULFAMETHOXAZOLE, TRIMETHOPRIM) PER ORAL NOS [Concomitant]
  13. MINOCYCLINE HCL [Concomitant]

REACTIONS (10)
  - BETA 2 MICROGLOBULIN INCREASED [None]
  - BLOOD BILIRUBIN INCREASED [None]
  - BLOOD LACTATE DEHYDROGENASE INCREASED [None]
  - CARDIAC ARREST [None]
  - CARDIAC TAMPONADE [None]
  - DEPRESSED LEVEL OF CONSCIOUSNESS [None]
  - HISTIOCYTOSIS HAEMATOPHAGIC [None]
  - PANCYTOPENIA [None]
  - RESPIRATORY ARREST [None]
  - SERUM FERRITIN INCREASED [None]
